FAERS Safety Report 8558007-9 (Version None)
Quarter: 2012Q3

REPORT INFORMATION
  Report Type: 
  Country: None (occurrence: None)
  Receive Date: 20120801
  Receipt Date: 20120629
  Transmission Date: 20120928
  Serious: No
  Sender: FDA-Public Use
  Company Number: US-009507513-2012SP036945

PATIENT

DRUGS (1)
  1. NUVARING [Suspect]
     Indication: PRODUCT USED FOR UNKNOWN INDICATION
     Dates: start: 20100620, end: 20100708

REACTIONS (1)
  - DEEP VEIN THROMBOSIS [None]
